FAERS Safety Report 9559392 (Version 1)
Quarter: 2013Q3

REPORT INFORMATION
  Report Type: Spontaneous
  Country: US (occurrence: None)
  Receive Date: 20130913
  Receipt Date: 20130913
  Transmission Date: 20140515
  Serious: Yes (Other)
  Sender: FDA-Public Use
  Company Number: 1000044654

PATIENT
  Age: 80 Year
  Sex: Female
  Weight: 34 kg

DRUGS (2)
  1. DALIRESP [Suspect]
     Indication: CHRONIC OBSTRUCTIVE PULMONARY DISEASE
     Route: 048
     Dates: start: 20130423, end: 20130423
  2. ADVAIR (SERETIDE) [Concomitant]

REACTIONS (7)
  - Dizziness [None]
  - Dyspnoea [None]
  - Diarrhoea [None]
  - Nausea [None]
  - Feeling cold [None]
  - Disorientation [None]
  - Headache [None]
